FAERS Safety Report 4867543-8 (Version None)
Quarter: 2005Q4

REPORT INFORMATION
  Report Type: 
  Country: None (occurrence: None)
  Receive Date: 20051227
  Receipt Date: 20051227
  Transmission Date: 20060501
  Serious: Yes (Life-Threatening)
  Sender: FDA-Public Use
  Company Number: None

PATIENT
  Age: 44 Year
  Sex: Male

DRUGS (1)
  1. LINEZOLID 600MG/ 300ML [Suspect]
     Indication: ENTEROCOCCAL BACTERAEMIA
     Dosage: 600MG Q 12H IV
     Route: 042
     Dates: start: 20050819, end: 20050829

REACTIONS (1)
  - BONE MARROW FAILURE [None]
